FAERS Safety Report 23466918 (Version 3)
Quarter: 2024Q4

REPORT INFORMATION
  Report Type: Report from Study
  Country: CO (occurrence: CO)
  Receive Date: 20240201
  Receipt Date: 20241022
  Transmission Date: 20250115
  Serious: Yes (Hospitalization, Other)
  Sender: AMGEN
  Company Number: CO-AMGEN-COLSL2023103739

PATIENT
  Age: 38 Year
  Sex: Female

DRUGS (4)
  1. NPLATE [Suspect]
     Active Substance: ROMIPLOSTIM
     Indication: Immune thrombocytopenia
     Dosage: 425 MICROGRAM, QWK
     Route: 058
     Dates: start: 20220421
  2. NPLATE [Suspect]
     Active Substance: ROMIPLOSTIM
     Dosage: 470 MICROGRAM/OTHER
     Route: 058
  3. NPLATE [Suspect]
     Active Substance: ROMIPLOSTIM
     Dosage: 442 MICROGRAM, QWK
     Route: 058
  4. NPLATE [Suspect]
     Active Substance: ROMIPLOSTIM
     Dosage: 442 MICROGRAM/OTHER
     Route: 058
     Dates: end: 20240828

REACTIONS (7)
  - Thrombocytosis [Recovered/Resolved]
  - Thrombocytopenia [Not Recovered/Not Resolved]
  - Product supply issue [Unknown]
  - Intentional dose omission [Not Recovered/Not Resolved]
  - Incorrect product formulation administered [Recovered/Resolved]
  - Illness [Not Recovered/Not Resolved]
  - Headache [Recovered/Resolved]

NARRATIVE: CASE EVENT DATE: 20231004
